FAERS Safety Report 26144328 (Version 1)
Quarter: 2025Q4

REPORT INFORMATION
  Report Type: Spontaneous
  Country: EU (occurrence: EU)
  Receive Date: 20251211
  Receipt Date: 20251211
  Transmission Date: 20260117
  Serious: Yes (Other)
  Sender: TEVA
  Company Number: None

PATIENT
  Age: 75 Year
  Sex: Female

DRUGS (5)
  1. VINCRISTINE [Suspect]
     Active Substance: VINCRISTINE
     Indication: Diffuse large B-cell lymphoma
     Dosage: 2 MG (DOSAGE AS OF 02/09/2025),VINCRISTINE TEVA ITALY
     Route: 042
     Dates: start: 20240902
  2. PREDNISONE [Suspect]
     Active Substance: PREDNISONE
     Indication: Product used for unknown indication
     Dosage: 41.75 MG (DOSAGE AS OF 02/09/2025)
     Route: 048
     Dates: start: 20250902
  3. RITUXIMAB [Suspect]
     Active Substance: RITUXIMAB
     Indication: Diffuse large B-cell lymphoma
     Dosage: 701.25 (DOSAGE OF 04/09/2025)
     Route: 042
     Dates: start: 20250904
  4. CYCLOPHOSPHAMIDE [Suspect]
     Active Substance: CYCLOPHOSPHAMIDE
     Indication: Diffuse large B-cell lymphoma
     Dosage: 1,252.50 MG (DOSAGE AS OF 02/09/2025), ENDOXAN BAXTER
     Route: 042
     Dates: start: 20250902
  5. DOXORUBICIN HYDROCHLORIDE [Suspect]
     Active Substance: DOXORUBICIN HYDROCHLORIDE
     Indication: Diffuse large B-cell lymphoma
     Dosage: 83.50 MG (DOSAGE AS OF 02/09/2025)
     Route: 042
     Dates: start: 20250902

REACTIONS (1)
  - Febrile neutropenia [Recovered/Resolved]

NARRATIVE: CASE EVENT DATE: 20250908
